FAERS Safety Report 5836096-X (Version None)
Quarter: 2008Q3

REPORT INFORMATION
  Report Type: 
  Country: None (occurrence: None)
  Receive Date: 20080806
  Receipt Date: 20080725
  Transmission Date: 20090109
  Serious: Yes (Hospitalization)
  Sender: FDA-Public Use
  Company Number: FR-PFIZER INC-2008063275

PATIENT
  Sex: Female

DRUGS (14)
  1. LYRICA [Suspect]
     Indication: PAIN IN EXTREMITY
     Route: 048
     Dates: start: 20080625, end: 20080703
  2. BISOPROLOL FUMARATE [Suspect]
     Indication: CARDIAC FAILURE
     Route: 048
  3. FOSINOPRIL SODIUM [Concomitant]
  4. POTASSIUM CHLORIDE [Concomitant]
  5. LEVODOPA BENSERAZIDE HYDROCHLO [Concomitant]
  6. FUROSEMIDE [Concomitant]
  7. FLUINDIONE [Concomitant]
  8. MORPHINE [Concomitant]
  9. MORPHINE [Concomitant]
  10. ACETAMINOPHEN [Concomitant]
  11. MACROGOL [Concomitant]
  12. PANTOPRAZOLE SODIUM [Concomitant]
  13. ALPRAZOLAM [Concomitant]
  14. ESCITALOPRAM OXALATE [Concomitant]

REACTIONS (2)
  - BRADYCARDIA [None]
  - MALAISE [None]
